FAERS Safety Report 6721830-7 (Version None)
Quarter: 2010Q2

REPORT INFORMATION
  Report Type: 
  Country: None (occurrence: None)
  Receive Date: 20100512
  Receipt Date: 20100504
  Transmission Date: 20101027
  Serious: Yes (Hospitalization)
  Sender: FDA-Public Use
  Company Number: FR-SANOFI-AVENTIS-2010SA025602

PATIENT
  Age: 94 Year
  Sex: Female

DRUGS (3)
  1. EQUANIL [Suspect]
     Route: 048
     Dates: end: 20100314
  2. PLAVIX [Suspect]
     Route: 048
     Dates: end: 20100314
  3. SEROPLEX [Suspect]
     Route: 048
     Dates: end: 20100314

REACTIONS (4)
  - HAEMATOMA [None]
  - HYPOCHROMIC ANAEMIA [None]
  - MYELODYSPLASTIC SYNDROME [None]
  - THROMBOCYTOPENIC PURPURA [None]
